FAERS Safety Report 8196602-X (Version None)
Quarter: 2012Q1

REPORT INFORMATION
  Report Type: 
  Country: None (occurrence: None)
  Receive Date: 20120309
  Receipt Date: 20120229
  Transmission Date: 20120608
  Serious: Yes (Other)
  Sender: FDA-Public Use
  Company Number: US-BAYER-2011-075357

PATIENT
  Age: 18 Year
  Sex: Female
  Weight: 58.503 kg

DRUGS (3)
  1. YASMIN [Suspect]
     Indication: MENSTRUATION IRREGULAR
     Dosage: UNK
     Dates: start: 20060601, end: 20061001
  2. ORTHO CYCLEN-28 [Concomitant]
     Dosage: UNK
  3. FAMOTIDINE [Concomitant]

REACTIONS (5)
  - GALLBLADDER INJURY [None]
  - CHOLECYSTITIS CHRONIC [None]
  - ERYTHEMA NODOSUM [None]
  - PAIN [None]
  - INJURY [None]
